FAERS Safety Report 13545850 (Version 1)
Quarter: 2017Q2

REPORT INFORMATION
  Report Type: Spontaneous
  Country: TW (occurrence: TW)
  Receive Date: 20170515
  Receipt Date: 20170515
  Transmission Date: 20170830
  Serious: Yes (Life-Threatening, Hospitalization, Other)
  Sender: FDA-Public Use
  Company Number: TW-BAYER-2017-085604

PATIENT
  Age: 40 Year
  Sex: Male

DRUGS (2)
  1. DICLOFENAC [Suspect]
     Active Substance: DICLOFENAC
     Dosage: 75 MG, UNK
  2. ASPIRIN. [Suspect]
     Active Substance: ASPIRIN

REACTIONS (9)
  - Hypersensitivity [None]
  - Loss of consciousness [None]
  - Bronchospasm [None]
  - Spinal fracture [None]
  - Dyspnoea [None]
  - Asthma [None]
  - Contusion [None]
  - General physical health deterioration [None]
  - Wheezing [None]
